FAERS Safety Report 4956430-2 (Version None)
Quarter: 2006Q1

REPORT INFORMATION
  Report Type: 
  Country: None (occurrence: None)
  Receive Date: 20060329
  Receipt Date: 20060320
  Transmission Date: 20060701
  Serious: Yes (Hospitalization, Other)
  Sender: FDA-Public Use
  Company Number: DE-JNJFOC-20060305508

PATIENT
  Age: 43 Year
  Sex: Male

DRUGS (13)
  1. RISPERDAL [Suspect]
     Route: 048
  2. RISPERDAL [Suspect]
     Route: 048
  3. RISPERDAL [Suspect]
     Route: 048
  4. RISPERDAL [Suspect]
     Indication: SCHIZOAFFECTIVE DISORDER
     Route: 048
  5. MELPERON [Suspect]
     Route: 048
  6. MELPERON [Suspect]
     Route: 048
  7. MELPERON [Suspect]
     Route: 048
  8. MELPERON [Suspect]
     Indication: SCHIZOAFFECTIVE DISORDER
     Route: 048
  9. ERGENYL [Concomitant]
     Route: 048
  10. ERGENYL [Concomitant]
     Route: 048
  11. ERGENYL [Concomitant]
     Route: 048
  12. BISOHEXAL [Concomitant]
     Route: 048
  13. MARCUMAR [Concomitant]

REACTIONS (1)
  - TACHYARRHYTHMIA [None]
